FAERS Safety Report 5013795-3 (Version None)
Quarter: 2006Q2

REPORT INFORMATION
  Report Type: 
  Country: None (occurrence: None)
  Receive Date: 20060525
  Receipt Date: 20060520
  Transmission Date: 20061013
  Serious: Yes (Hospitalization)
  Sender: FDA-Public Use
  Company Number: 220110

PATIENT
  Age: 81 Year
  Sex: Male

DRUGS (3)
  1. AVASTIN [Suspect]
     Indication: COLORECTAL CANCER METASTATIC
     Dates: start: 20051001, end: 20051101
  2. XELODA [Concomitant]
  3. ISOSORBIDE (ISOSORBIDE NOS) [Concomitant]

REACTIONS (6)
  - ANOREXIA [None]
  - ASTHENIA [None]
  - INTESTINAL ISCHAEMIA [None]
  - NAUSEA [None]
  - PYREXIA [None]
  - VOMITING [None]
